FAERS Safety Report 6209095-6 (Version None)
Quarter: 2009Q2

REPORT INFORMATION
  Report Type: 
  Country: None (occurrence: None)
  Receive Date: 20090529
  Receipt Date: 20090518
  Transmission Date: 20091009
  Serious: Yes (Other)
  Sender: FDA-Public Use
  Company Number: US-PFIZER INC-2009201020

PATIENT
  Sex: Female

DRUGS (22)
  1. PROVERA [Suspect]
     Indication: HOT FLUSH
     Dosage: UNK
     Route: 048
     Dates: start: 19960901
  2. CLIMARA [Suspect]
     Indication: MENOPAUSE
     Dosage: 0.05 MG, UNK
     Route: 062
     Dates: start: 19960921, end: 20011005
  3. PROMETRIUM [Suspect]
     Indication: MENOPAUSE
     Dosage: 200 MG, UNK
     Dates: start: 19990101, end: 20070601
  4. VIVELLE-DOT [Suspect]
     Indication: MENOPAUSE
     Dosage: UNK
     Route: 062
     Dates: start: 19990101, end: 20070601
  5. PREMARIN [Suspect]
     Indication: HOT FLUSH
     Dosage: 0.625 MG, UNK
     Route: 048
     Dates: start: 19960801
  6. NORVASC [Concomitant]
     Indication: HYPERTENSION
     Dosage: 5 MG, UNK
     Route: 048
     Dates: start: 19900101
  7. LEVOXYL [Concomitant]
     Indication: HYPOTHYROIDISM
     Dosage: 0.088 MG, UNK
     Dates: start: 19880101
  8. ZOCOR [Concomitant]
     Indication: BLOOD CHOLESTEROL INCREASED
     Dosage: 20 MG, UNK
     Dates: start: 19900101
  9. CITALOPRAM [Concomitant]
     Indication: DEPRESSION
     Dosage: UNK
     Dates: start: 19900101
  10. CELEXA [Concomitant]
     Dosage: 20 MG, UNK
  11. NEXIUM [Concomitant]
  12. NEURONTIN [Concomitant]
     Indication: BACK PAIN
     Dosage: 20 MG, UNK
  13. NEURONTIN [Concomitant]
     Indication: ARTHRITIS
  14. ASPIRIN [Concomitant]
  15. LITHIUM [Concomitant]
     Indication: DEPRESSION
     Dosage: 600 MG, UNK
     Dates: start: 19950503
  16. PERI-COLACE [Concomitant]
     Indication: CONSTIPATION
     Dosage: UNK
     Dates: start: 19960101
  17. KLONOPIN [Concomitant]
     Indication: DEPRESSION
     Dosage: 0.75 MG, UNK
  18. PARNATE [Concomitant]
     Indication: DEPRESSION
     Dosage: 3 DF, UNK
  19. BENTYL [Concomitant]
     Indication: IRRITABLE BOWEL SYNDROME
  20. CALCIUM [Concomitant]
     Indication: RICKETS
     Dosage: UNK
  21. TOFRANIL [Concomitant]
     Indication: DEPRESSION
  22. VITAMIN D [Concomitant]
     Indication: RICKETS

REACTIONS (4)
  - ARTHRITIS [None]
  - BREAST CANCER [None]
  - CELLULITIS [None]
  - MEMORY IMPAIRMENT [None]
